FAERS Safety Report 9701373 (Version 1)
Quarter: 2013Q4

REPORT INFORMATION
  Report Type: Spontaneous
  Country: US (occurrence: US)
  Receive Date: 20131121
  Receipt Date: 20131121
  Transmission Date: 20140711
  Serious: No
  Sender: FDA-Public Use
  Company Number: US-GILEAD-2008-0016853

PATIENT
  Age: 77 Year
  Sex: Male
  Weight: 66.68 kg

DRUGS (11)
  1. LETAIRIS [Suspect]
     Indication: LUNG DISORDER
     Route: 048
     Dates: start: 20071105, end: 20080610
  2. NORVASC [Concomitant]
     Route: 048
  3. HYTRIN [Concomitant]
     Route: 048
  4. CELLCEPT [Concomitant]
     Route: 048
  5. NAC 600 [Concomitant]
     Route: 048
  6. IMDUR [Concomitant]
     Route: 048
  7. ASA LO-DOSE [Concomitant]
     Route: 048
  8. MOTRIN [Concomitant]
     Route: 048
  9. SINGULAIR [Concomitant]
     Route: 048
  10. CLARITIN [Concomitant]
     Route: 048
  11. OXYGEN [Concomitant]
     Dosage: 24/7
     Route: 045

REACTIONS (1)
  - Feeling cold [Recovered/Resolved]
